FAERS Safety Report 12970098 (Version 3)
Quarter: 2016Q4

REPORT INFORMATION
  Report Type: Report from Study
  Country: None (occurrence: PT)
  Receive Date: 20161123
  Receipt Date: 20161223
  Transmission Date: 20170207
  Serious: Yes (Other)
  Sender: FDA-Public Use
  Company Number: PT-ABBVIE-16P-130-1787365-00

PATIENT
  Age: 79 Year
  Sex: Female

DRUGS (2)
  1. DUODOPA [Suspect]
     Active Substance: CARBIDOPA\LEVODOPA
     Indication: PARKINSON^S DISEASE
     Dosage: 20 MG LEVODOPA + 5 MG CARBIDOPA
     Route: 050
     Dates: start: 20160804, end: 20161116
  2. DUODOPA [Suspect]
     Active Substance: CARBIDOPA\LEVODOPA
     Dosage: 20 MG LEVODOPA + 5 MG CARBIDOPA, MD=8ML, CD=5.1ML/H, ED=1ML/DAY
     Route: 050
     Dates: start: 20161117

REACTIONS (3)
  - Salivary hypersecretion [Recovered/Resolved]
  - On and off phenomenon [Recovered/Resolved]
  - Hypokinesia [Recovered/Resolved]

NARRATIVE: CASE EVENT DATE: 20161113
